FAERS Safety Report 4634171-9 (Version None)
Quarter: 2005Q2

REPORT INFORMATION
  Report Type: 
  Country: None (occurrence: None)
  Receive Date: 20050413
  Receipt Date: 20050405
  Transmission Date: 20051028
  Serious: Yes (Hospitalization)
  Sender: FDA-Public Use
  Company Number: 200511196FR

PATIENT
  Age: 43 Year
  Sex: Male

DRUGS (5)
  1. KETEK [Suspect]
     Route: 048
     Dates: start: 20050121, end: 20050126
  2. DI-ANTALVIC [Suspect]
     Indication: BACK PAIN
     Route: 048
     Dates: start: 20050202, end: 20050202
  3. SPEDIFEN [Suspect]
     Indication: BACK PAIN
     Route: 048
     Dates: start: 20050121, end: 20050126
  4. PIROXICAM [Suspect]
     Indication: BACK PAIN
     Route: 048
     Dates: start: 20050204, end: 20050204
  5. PARACETAMOL [Concomitant]
     Indication: BACK PAIN

REACTIONS (1)
  - THROMBOCYTOPENIC PURPURA [None]
